FAERS Safety Report 21644463 (Version 1)
Quarter: 2022Q4

REPORT INFORMATION
  Report Type: Spontaneous
  Country: DE (occurrence: None)
  Receive Date: 20221125
  Receipt Date: 20221125
  Transmission Date: 20230113
  Serious: Yes (Other)
  Sender: FDA-Public Use
  Company Number: 2022A385527

PATIENT
  Sex: Female

DRUGS (7)
  1. ANIFROLUMAB [Suspect]
     Active Substance: ANIFROLUMAB
     Indication: Arthritis
     Route: 042
     Dates: start: 202209
  2. ANIFROLUMAB [Suspect]
     Active Substance: ANIFROLUMAB
     Indication: Erythema
     Route: 042
     Dates: start: 202209
  3. QUENSYL + AZATHIOPRINE [Concomitant]
     Dosage: 2005-2007
     Route: 065
  4. MYCOPHENOLATE MOFETIL [Concomitant]
     Active Substance: MYCOPHENOLATE MOFETIL
     Dosage: UNTIL 2012
     Route: 065
  5. MYCOPHENOLATE MOFETIL [Concomitant]
     Active Substance: MYCOPHENOLATE MOFETIL
     Indication: Pancytopenia
     Route: 065
     Dates: start: 2013
  6. AZA [Concomitant]
     Dosage: 2X50
     Route: 065
  7. CSA [Concomitant]
     Dosage: 2X50
     Route: 065

REACTIONS (1)
  - Thrombocytopenia [Unknown]
